FAERS Safety Report 7024439-3 (Version None)
Quarter: 2010Q4

REPORT INFORMATION
  Report Type: 
  Country: None (occurrence: None)
  Receive Date: 20101001
  Receipt Date: 20100921
  Transmission Date: 20110411
  Serious: Yes (Hospitalization, Other)
  Sender: FDA-Public Use
  Company Number: JP-PFIZER INC-2010119839

PATIENT
  Age: 83 Year
  Sex: Male

DRUGS (3)
  1. AZULFIDINE [Suspect]
     Indication: RHEUMATOID ARTHRITIS
     Dosage: 1000 MG/DAY
     Route: 048
     Dates: end: 20100909
  2. RHEUMATREX [Suspect]
     Indication: RHEUMATOID ARTHRITIS
     Dosage: 4 MG/DAY
     Route: 048
     Dates: end: 20100909
  3. PROTECADIN [Suspect]
     Dosage: 20 MG/DAY
     Route: 048
     Dates: end: 20100909

REACTIONS (3)
  - ASTHENIA [None]
  - PANCYTOPENIA [None]
  - URINE OUTPUT DECREASED [None]
